FAERS Safety Report 6659624-3 (Version None)
Quarter: 2010Q1

REPORT INFORMATION
  Report Type: 
  Country: None (occurrence: None)
  Receive Date: 20100330
  Receipt Date: 20100322
  Transmission Date: 20100710
  Serious: Yes (Other)
  Sender: FDA-Public Use
  Company Number: US-PFIZER INC-2010036582

PATIENT
  Sex: Male

DRUGS (2)
  1. LIPITOR [Suspect]
  2. TRILIPIX [Suspect]
     Dosage: 135 MG, UNK
     Dates: end: 20091101

REACTIONS (2)
  - BLOOD CREATINE PHOSPHOKINASE INCREASED [None]
  - OEDEMA PERIPHERAL [None]
